FAERS Safety Report 11612443 (Version 1)
Quarter: 2015Q4

REPORT INFORMATION
  Report Type: Spontaneous
  Country: US (occurrence: US)
  Receive Date: 20151008
  Receipt Date: 20151008
  Transmission Date: 20160304
  Serious: No
  Sender: FDA-Public Use
  Company Number: US-JNJFOC-20150909657

PATIENT
  Age: 33 Year
  Sex: Female

DRUGS (1)
  1. XARELTO [Suspect]
     Active Substance: RIVAROXABAN
     Indication: COAGULOPATHY
     Route: 048

REACTIONS (9)
  - Weight increased [Unknown]
  - Asthenia [Unknown]
  - Central nervous system lesion [Unknown]
  - Balance disorder [Unknown]
  - Paraesthesia [Unknown]
  - Fatigue [Unknown]
  - Muscle spasticity [Unknown]
  - Therapeutic response unexpected [Unknown]
  - Gait disturbance [Unknown]
